FAERS Safety Report 6027924-6 (Version None)
Quarter: 2009Q1

REPORT INFORMATION
  Report Type: 
  Country: None (occurrence: None)
  Receive Date: 20090105
  Receipt Date: 20081230
  Transmission Date: 20090719
  Serious: Yes (Other)
  Sender: FDA-Public Use
  Company Number: PHHY2008DE33329

PATIENT
  Sex: Male

DRUGS (1)
  1. VOLTAREN [Suspect]
     Indication: SPORTS INJURY
     Dosage: 1 TO 2 CAPSULES, PER REAL NEED
     Route: 048

REACTIONS (3)
  - STENT OCCLUSION [None]
  - STENT PLACEMENT [None]
  - THROMBOSIS [None]
